FAERS Safety Report 9425126 (Version 1)
Quarter: 2013Q3

REPORT INFORMATION
  Report Type: Spontaneous
  Country: US (occurrence: US)
  Receive Date: 20130729
  Receipt Date: 20130729
  Transmission Date: 20140515
  Serious: No
  Sender: FDA-Public Use
  Company Number: US-TEVA-421130USA

PATIENT
  Age: 74 Year
  Sex: Female

DRUGS (3)
  1. QNASL [Suspect]
     Indication: ASTHMA
  2. BLOOD PRESSURE MEDICATION [Concomitant]
     Indication: HYPERTENSION
  3. VENTOLIN [Concomitant]
     Indication: ASTHMA

REACTIONS (2)
  - Rhinitis [Unknown]
  - Disease progression [Unknown]
